FAERS Safety Report 18487066 (Version 1)
Quarter: 2020Q4

REPORT INFORMATION
  Report Type: Spontaneous
  Country: CH (occurrence: CH)
  Receive Date: 20201110
  Receipt Date: 20201110
  Transmission Date: 20210114
  Serious: Yes (Hospitalization, Disabling, Other)
  Sender: FDA-Public Use
  Company Number: CH-MALLINCKRODT-T202005392

PATIENT
  Age: 53 Year
  Sex: Male

DRUGS (6)
  1. PROPOFOL MCT FRESENIUS [Suspect]
     Active Substance: PROPOFOL
     Indication: RHINOPLASTY
     Dosage: 300 MILLIGRAM
     Route: 041
     Dates: start: 20201001, end: 20201001
  2. SUFENTA [Suspect]
     Active Substance: SUFENTANIL CITRATE
     Indication: RHINOPLASTY
     Dosage: 20 MICROGRAM
     Route: 041
     Dates: start: 20201001, end: 20201001
  3. SUXAMETHONIUM [Suspect]
     Active Substance: SUCCINYLCHOLINE
     Indication: RHINOPLASTY
     Dosage: 90 MILLIGRAM
     Route: 041
     Dates: start: 20201001, end: 20201001
  4. LIDOCAINE. [Suspect]
     Active Substance: LIDOCAINE
     Indication: RHINOPLASTY
     Dosage: 1 GRAM
     Route: 041
     Dates: start: 20201001, end: 20201001
  5. OFIRMEV [Suspect]
     Active Substance: ACETAMINOPHEN
     Indication: RHINOPLASTY
     Dosage: 1 GRAM, UNK
     Route: 041
     Dates: start: 20201001, end: 20201001
  6. TORADOL [Suspect]
     Active Substance: KETOROLAC TROMETHAMINE
     Indication: RHINOPLASTY
     Dosage: 30 MILLIGRAM
     Route: 041
     Dates: start: 20201001, end: 20201001

REACTIONS (2)
  - Myalgia [Recovering/Resolving]
  - Rhabdomyolysis [Recovering/Resolving]

NARRATIVE: CASE EVENT DATE: 20201001
